FAERS Safety Report 4750421-2 (Version None)
Quarter: 2005Q3

REPORT INFORMATION
  Report Type: 
  Country: None (occurrence: None)
  Receive Date: 20050819
  Receipt Date: 20050805
  Transmission Date: 20060218
  Serious: No
  Sender: FDA-Public Use
  Company Number: 31617

PATIENT
  Age: 57 Year
  Sex: Male

DRUGS (1)
  1. TROPICAMIDE [Suspect]
     Indication: FUNDOSCOPY
     Dosage: 1 GTT OU ONCE, OPHT
     Route: 047
     Dates: start: 20050623, end: 20050623

REACTIONS (5)
  - DIZZINESS [None]
  - HYPOTENSION [None]
  - NAUSEA [None]
  - OCULAR HYPERAEMIA [None]
  - SYNCOPE VASOVAGAL [None]
